FAERS Safety Report 9228003 (Version 1)
Quarter: 2013Q1

REPORT INFORMATION
  Report Type: Spontaneous
  Country: US (occurrence: None)
  Receive Date: 20121023
  Receipt Date: 20121023
  Transmission Date: 20140127
  Serious: Yes (Other)
  Sender: FDA-Public Use
  Company Number: PHEH2012US009086

PATIENT
  Age: 62 Year
  Sex: Female

DRUGS (1)
  1. VIVELLE DOT ( ESTRADIOL) TRANS-THERAPEUTIC-SYSTEM [Suspect]
     Indication: MENOPAUSAL SYMPTOMS
     Dosage: 0.1 MG, EVERY 3 DAYS, TRANSDERMAL
     Route: 062
     Dates: start: 20111125, end: 20120611

REACTIONS (8)
  - Major depression [None]
  - Fear [None]
  - Mood swings [None]
  - Lethargy [None]
  - Product adhesion issue [None]
  - Weight increased [None]
  - Hot flush [None]
  - Alopecia [None]
